FAERS Safety Report 10430654 (Version 3)
Quarter: 2014Q4

REPORT INFORMATION
  Report Type: Spontaneous
  Country: US (occurrence: US)
  Receive Date: 20140904
  Receipt Date: 20141007
  Transmission Date: 20150528
  Serious: Yes (Other)
  Sender: FDA-Public Use
  Company Number: US-TEVA-506822USA

PATIENT
  Age: 30 Year
  Sex: Female
  Weight: 111.68 kg

DRUGS (1)
  1. PARAGARD T380A [Suspect]
     Active Substance: COPPER
     Indication: CONTRACEPTION
     Route: 015
     Dates: start: 20130807, end: 20140915

REACTIONS (7)
  - Ovarian cyst [Unknown]
  - Hydrometra [Unknown]
  - Vaginal haemorrhage [Unknown]
  - Complication of device removal [Recovered/Resolved]
  - Cervical discharge [Unknown]
  - Menorrhagia [Unknown]
  - Device dislocation [Recovered/Resolved]

NARRATIVE: CASE EVENT DATE: 20140812
